FAERS Safety Report 8737238 (Version 4)
Quarter: 2018Q1

REPORT INFORMATION
  Report Type: Spontaneous
  Country: US (occurrence: US)
  Receive Date: 20120822
  Receipt Date: 20180115
  Transmission Date: 20180509
  Serious: No
  Sender: FDA-Public Use
  Company Number: US-ASTRAZENECA-2009UW15255

PATIENT
  Age: 757 Month
  Sex: Female
  Weight: 61.2 kg

DRUGS (11)
  1. SYMBICORT [Suspect]
     Active Substance: BUDESONIDE\FORMOTEROL FUMARATE DIHYDRATE
     Dosage: 160/4.5 MCG, 1 PUFF, TWO TIMES A DAY
     Route: 055
  2. RHINOCORT [Suspect]
     Active Substance: BUDESONIDE
     Route: 045
  3. CRESTOR [Suspect]
     Active Substance: ROSUVASTATIN CALCIUM
     Route: 048
  4. ALBUTEROL SULFATE. [Concomitant]
     Active Substance: ALBUTEROL SULFATE
  5. MELOXICAM. [Concomitant]
     Active Substance: MELOXICAM
  6. CRESTOR [Suspect]
     Active Substance: ROSUVASTATIN CALCIUM
     Route: 048
  7. SYMBICORT [Suspect]
     Active Substance: BUDESONIDE\FORMOTEROL FUMARATE DIHYDRATE
     Dosage: 160/4.5 MCG,TWO TIMES ADAY
     Route: 055
  8. FLUTICASONE. [Concomitant]
     Active Substance: FLUTICASONE
  9. PROAIR HFA [Concomitant]
     Active Substance: ALBUTEROL SULFATE
  10. ESCITALOPRAM [Concomitant]
     Active Substance: ESCITALOPRAM OXALATE
  11. IBUPROFEN. [Concomitant]
     Active Substance: IBUPROFEN
     Dosage: 800.0MG UNKNOWN

REACTIONS (11)
  - Sinusitis [Unknown]
  - Sleep disorder [Unknown]
  - Nervousness [Unknown]
  - Anxiety [Unknown]
  - Drug dose omission [Not Recovered/Not Resolved]
  - Stress [Unknown]
  - Asthma [Not Recovered/Not Resolved]
  - Off label use [Unknown]
  - Muscle spasms [Recovered/Resolved]
  - Intentional product misuse [Unknown]
  - Sinus disorder [Unknown]

NARRATIVE: CASE EVENT DATE: 201411
